FAERS Safety Report 20994176 (Version 1)
Quarter: 2022Q2

REPORT INFORMATION
  Report Type: Spontaneous
  Country: ES (occurrence: ES)
  Receive Date: 20220622
  Receipt Date: 20220622
  Transmission Date: 20220721
  Serious: Yes (Hospitalization)
  Sender: FDA-Public Use
  Company Number: None

PATIENT
  Age: 67 Year
  Sex: Male

DRUGS (3)
  1. LISINOPRIL [Interacting]
     Active Substance: LISINOPRIL
     Indication: Hypertension
     Dosage: 20 MILLIGRAM, QD
     Route: 048
     Dates: start: 20171019, end: 20220529
  2. BISOPROLOL [Interacting]
     Active Substance: BISOPROLOL
     Indication: Cardiac failure
     Dosage: 2.5 MILLIGRAM, QD
     Route: 048
     Dates: start: 20180221, end: 20220529
  3. SPIRONOLACTONE [Interacting]
     Active Substance: SPIRONOLACTONE
     Indication: Cardiac failure
     Dosage: 50 MILLIGRAM, QD (2-0-0)
     Route: 048
     Dates: start: 20220508, end: 20220529

REACTIONS (2)
  - Hyperkalaemia [Recovering/Resolving]
  - Drug interaction [Unknown]

NARRATIVE: CASE EVENT DATE: 20220529
